FAERS Safety Report 7709096-2 (Version None)
Quarter: 2011Q3

REPORT INFORMATION
  Report Type: 
  Country: None (occurrence: None)
  Receive Date: 20110825
  Receipt Date: 20110811
  Transmission Date: 20111222
  Serious: Yes (Other)
  Sender: FDA-Public Use
  Company Number: PHEH2011US02339

PATIENT
  Age: 52 Year
  Sex: Female

DRUGS (2)
  1. FEMARA [Suspect]
  2. TEGRETOL [Concomitant]

REACTIONS (1)
  - LOSS OF CONSCIOUSNESS [None]
